FAERS Safety Report 4585450-5 (Version None)
Quarter: 2005Q1

REPORT INFORMATION
  Report Type: 
  Country: None (occurrence: None)
  Receive Date: 20050214
  Receipt Date: 20050204
  Transmission Date: 20050727
  Serious: Yes (Other)
  Sender: FDA-Public Use
  Company Number: USA-2003-0003883

PATIENT
  Age: 31 Year
  Sex: Female

DRUGS (17)
  1. OXYCODONE HCL [Suspect]
     Indication: PAIN
     Dosage: SEE IMAGE
     Route: 048
     Dates: start: 19990101, end: 20010601
  2. OXYCODONE HCL [Suspect]
     Indication: PAIN
     Dosage: SEE IMAGE
     Route: 048
     Dates: start: 20000323
  3. OXYCODONE HCL [Suspect]
     Indication: PAIN
     Dosage: SEE IMAGE
     Route: 048
     Dates: start: 20001214
  4. ROXICODONE [Concomitant]
  5. NORTRIPTYLINE HCL [Concomitant]
  6. VALIUM [Concomitant]
  7. ADIPEX-P [Concomitant]
  8. AMOXICILLIN [Concomitant]
  9. POTASSIUM CHLORIDE [Concomitant]
  10. FUROSEMIDE [Concomitant]
  11. ROXICET [Concomitant]
  12. ARTHROTEC (MISOPROSTOL, DICLOFENAC SODIUM) [Concomitant]
  13. HYDROCHLOROTHIAZIDE [Concomitant]
  14. TEGRETOL [Concomitant]
  15. CORTANE B OTIC (PRAMOCAINE HYDROCHLORIDE, CHLOROXYLENOL, HYDROCHORTISO [Concomitant]
  16. VICODIN [Concomitant]
  17. HYDROCODONE [Concomitant]

REACTIONS (9)
  - CERVIX CARCINOMA RECURRENT [None]
  - CONTUSION [None]
  - DEPRESSION [None]
  - DRUG DEPENDENCE [None]
  - DRUG WITHDRAWAL SYNDROME [None]
  - HEPATITIS C [None]
  - IRRITABILITY [None]
  - NERVOUSNESS [None]
  - ROAD TRAFFIC ACCIDENT [None]
